FAERS Safety Report 8335226-8 (Version None)
Quarter: 2012Q2

REPORT INFORMATION
  Report Type: 
  Country: None (occurrence: None)
  Receive Date: 20120503
  Receipt Date: 20120227
  Transmission Date: 20120825
  Serious: Yes (Other)
  Sender: FDA-Public Use
  Company Number: AU-B.I. PHARMACEUTICALS,INC./RIDGEFIELD-2012-AU-00379AU

PATIENT
  Sex: Male

DRUGS (9)
  1. NEXIUM [Concomitant]
     Dosage: 80 MG
  2. MAGNESIUM [Concomitant]
  3. PRADAXA [Suspect]
     Dosage: 110 MG
  4. ATENOLOL [Concomitant]
     Dosage: 25 MG
  5. XALATAN [Concomitant]
  6. AMIODARONE HCL [Concomitant]
     Indication: ATRIAL FIBRILLATION
  7. PANTOPRAZOLE [Concomitant]
     Dosage: 40 MG
  8. ACTONEL WITH CALCIUM (COPACKAGED) [Concomitant]
  9. FLECAINIDE ACETATE [Concomitant]
     Dosage: 250 MG

REACTIONS (3)
  - ARACHNOID CYST [None]
  - HEMIANOPIA HETERONYMOUS [None]
  - HAEMORRHAGE INTRACRANIAL [None]
